FAERS Safety Report 8005141-8 (Version None)
Quarter: 2011Q4

REPORT INFORMATION
  Report Type: 
  Country: None (occurrence: None)
  Receive Date: 20111223
  Receipt Date: 20111214
  Transmission Date: 20120403
  Serious: Yes (Other)
  Sender: FDA-Public Use
  Company Number: PHHY2011JP109566

PATIENT
  Age: 66 Year
  Sex: Female

DRUGS (11)
  1. EPIRUBICIN HYDROCHLORIDE [Concomitant]
     Dates: start: 20060801
  2. ANASTROZOLE [Concomitant]
     Route: 048
  3. CYCLOPHOSPHAMIDE [Concomitant]
     Route: 048
     Dates: start: 20060801
  4. CAPECITABINE [Concomitant]
     Route: 048
     Dates: start: 20070301
  5. LETROZOLE [Suspect]
     Indication: BREAST CANCER
     Route: 048
     Dates: start: 20070201
  6. TOREMIFENE [Concomitant]
     Route: 048
     Dates: start: 20070601
  7. FLUOROURACIL [Concomitant]
     Route: 048
     Dates: start: 20060801
  8. CYCLOPHOSPHAMIDE [Concomitant]
     Route: 048
     Dates: start: 20070501
  9. TOREMIFENE [Concomitant]
     Route: 048
     Dates: start: 20080301
  10. DOCETAXEL [Concomitant]
     Dates: start: 20060801
  11. CAPECITABINE [Concomitant]
     Route: 048
     Dates: start: 20070901

REACTIONS (2)
  - NEOPLASM MALIGNANT [None]
  - ACUTE MYELOID LEUKAEMIA [None]
